FAERS Safety Report 6652479-2 (Version None)
Quarter: 2010Q1

REPORT INFORMATION
  Report Type: 
  Country: None (occurrence: None)
  Receive Date: 20100323
  Receipt Date: 20100312
  Transmission Date: 20100710
  Serious: Yes (Disabling)
  Sender: FDA-Public Use
  Company Number: TUK2010A00035

PATIENT
  Age: 74 Year
  Sex: Male

DRUGS (10)
  1. ACTOS [Suspect]
     Indication: DIABETES MELLITUS
     Dosage: (15 MG) ORAL
     Route: 048
     Dates: start: 20091014
  2. BISOPROLOL FUMARATE [Concomitant]
  3. E45 TICH RELIEF(UREA, LAURETH COMPOUNDS) [Concomitant]
  4. GLICLAZIDE (GLICLAZIDE) [Concomitant]
  5. METFORMIN HCL [Concomitant]
  6. RANITIDINE (RANTIDINE) [Concomitant]
  7. SITAGLIPTIN [Concomitant]
  8. TELMISARTAN [Concomitant]
  9. VENTOLIN [Concomitant]
  10. WARFARIN SODIUM [Concomitant]

REACTIONS (1)
  - CONSTIPATION [None]
